FAERS Safety Report 23415188 (Version 1)
Quarter: 2024Q1

REPORT INFORMATION
  Report Type: Spontaneous
  Country: US (occurrence: US)
  Receive Date: 20240118
  Receipt Date: 20240118
  Transmission Date: 20240409
  Serious: No
  Sender: FDA-Public Use
  Company Number: US-APOTEX-2023AP009928

PATIENT
  Sex: Female

DRUGS (2)
  1. DESMOPRESSIN ACETATE [Suspect]
     Active Substance: DESMOPRESSIN ACETATE
     Indication: Diabetes insipidus
     Dosage: 4 DOSAGE FORM (SPRAY), BID, AS NEEDED
     Route: 045
     Dates: start: 20230624
  2. DESMOPRESSIN ACETATE [Suspect]
     Active Substance: DESMOPRESSIN ACETATE
     Dosage: 2 DOSAGE FORM, 1 SPRAY IN EACH NOSTRIL DAILY OR AS NEEDED
     Route: 045
     Dates: start: 2023

REACTIONS (6)
  - Product delivery mechanism issue [Unknown]
  - Incorrect dose administered [Unknown]
  - No adverse event [Unknown]
  - Product container issue [Unknown]
  - Product dose omission issue [Unknown]
  - Therapeutic response shortened [Unknown]

NARRATIVE: CASE EVENT DATE: 20230624
